FAERS Safety Report 5769824-2 (Version None)
Quarter: 2008Q2

REPORT INFORMATION
  Report Type: 
  Country: None (occurrence: None)
  Receive Date: 20080612
  Receipt Date: 20080410
  Transmission Date: 20081010
  Serious: No
  Sender: FDA-Public Use
  Company Number: US-ABBOTT-08P-163-0446698-00

PATIENT
  Sex: Male
  Weight: 106.69 kg

DRUGS (9)
  1. HUMIRA [Suspect]
     Indication: RHEUMATOID ARTHRITIS
     Route: 058
     Dates: start: 20070401
  2. MORPHINE [Concomitant]
     Indication: PAIN
     Route: 048
  3. TYLOX [Concomitant]
     Indication: PAIN
     Route: 048
  4. LEVOTHYROXINE SODIUM [Concomitant]
     Indication: PAIN
     Route: 048
  5. MOMETASONE FUROATE [Concomitant]
     Indication: SEASONAL ALLERGY
     Route: 045
  6. FLUOXETINE HCL [Concomitant]
     Indication: DEPRESSION
     Route: 048
  7. TRAZEDONE [Concomitant]
     Indication: SLEEP DISORDER THERAPY
     Route: 048
  8. LORAZEPAM [Concomitant]
     Indication: SLEEP DISORDER THERAPY
     Route: 048
  9. OMEPRAZOLE [Concomitant]
     Indication: GASTROOESOPHAGEAL REFLUX DISEASE
     Route: 048

REACTIONS (1)
  - OEDEMA PERIPHERAL [None]
